FAERS Safety Report 7441013-5 (Version None)
Quarter: 2011Q2

REPORT INFORMATION
  Report Type: 
  Country: None (occurrence: None)
  Receive Date: 20110427
  Receipt Date: 20101206
  Transmission Date: 20111010
  Serious: Yes (Other)
  Sender: FDA-Public Use
  Company Number: US-BAYER-200922472NA

PATIENT
  Age: 58 Year
  Sex: Male

DRUGS (2)
  1. BETASERON [Suspect]
     Indication: SECONDARY PROGRESSIVE MULTIPLE SCLEROSIS
     Dosage: 8 MIU, QOD
     Route: 058
     Dates: start: 19950824
  2. BETASERON [Suspect]
     Dosage: 8 MIU QOD
     Route: 058

REACTIONS (3)
  - SKIN CANCER [None]
  - PROTEINURIA [None]
  - PROTEIN URINE PRESENT [None]
